FAERS Safety Report 8208834-2 (Version None)
Quarter: 2012Q1

REPORT INFORMATION
  Report Type: 
  Country: None (occurrence: None)
  Receive Date: 20120314
  Receipt Date: 20120308
  Transmission Date: 20120608
  Serious: Yes (Disabling, Other)
  Sender: FDA-Public Use
  Company Number: US-PFIZER INC-2012062543

PATIENT
  Sex: Male
  Weight: 83.9 kg

DRUGS (2)
  1. EFFEXOR XR [Suspect]
     Indication: DEPRESSION
     Dosage: 150 MG, 2X/DAY
     Route: 048
  2. VIAGRA [Concomitant]
     Dosage: UNK

REACTIONS (2)
  - ACTIVITIES OF DAILY LIVING IMPAIRED [None]
  - BLOOD GLUCOSE INCREASED [None]
